FAERS Safety Report 10504209 (Version 1)
Quarter: 2014Q4

REPORT INFORMATION
  Report Type: Spontaneous
  Country: US (occurrence: US)
  Receive Date: 20141008
  Receipt Date: 20141008
  Transmission Date: 20150528
  Serious: No
  Sender: FDA-Public Use
  Company Number: US-BEH-2014042858

PATIENT
  Sex: Female
  Weight: 79 kg

DRUGS (47)
  1. NAMENDA [Concomitant]
     Active Substance: MEMANTINE HYDROCHLORIDE
  2. DHEA [Concomitant]
     Active Substance: DEHYDROEPIANDROSTERONE-3-SULFATE SODIUM
  3. XYLOCAINE [Concomitant]
     Active Substance: LIDOCAINE HYDROCHLORIDE
  4. CRANBERRY TAB [Concomitant]
  5. DRONABINOL. [Concomitant]
     Active Substance: DRONABINOL
  6. MORPHINE [Concomitant]
     Active Substance: MORPHINE
  7. ZEGERID [Concomitant]
     Active Substance: OMEPRAZOLE\SODIUM BICARBONATE
  8. ALL OTHER THERAPEUTIC PRODUCTS [Concomitant]
     Active Substance: UNSPECIFIED INGREDIENT
  9. SALINE [Concomitant]
     Active Substance: SODIUM CHLORIDE
  10. PROCHLORPERAZINE. [Concomitant]
     Active Substance: PROCHLORPERAZINE
  11. TIZANIDINE (TIZANIDINE) [Concomitant]
     Active Substance: TIZANIDINE
  12. CYANOCOBALAMIN. [Concomitant]
     Active Substance: CYANOCOBALAMIN
  13. PRIVIGEN [Suspect]
     Active Substance: HUMAN IMMUNOGLOBULIN G
     Indication: MULTIPLE SCLEROSIS
     Route: 042
  14. PRIVIGEN [Suspect]
     Active Substance: HUMAN IMMUNOGLOBULIN G
     Indication: IMMUNODEFICIENCY COMMON VARIABLE
     Route: 042
  15. TRAMADOL [Concomitant]
     Active Substance: TRAMADOL
  16. NYSTATIN. [Concomitant]
     Active Substance: NYSTATIN
  17. MIRALAX [Concomitant]
     Active Substance: POLYETHYLENE GLYCOL 3350
  18. DIPHENHYDRAMINE [Concomitant]
     Active Substance: DIPHENHYDRAMINE
  19. ARICEPT [Concomitant]
     Active Substance: DONEPEZIL HYDROCHLORIDE
  20. NORCO [Concomitant]
     Active Substance: ACETAMINOPHEN\HYDROCODONE BITARTRATE
  21. ATIVAN [Concomitant]
     Active Substance: LORAZEPAM
  22. ZITHROMAX [Concomitant]
     Active Substance: AZITHROMYCIN DIHYDRATE
  23. RELPAX [Concomitant]
     Active Substance: ELETRIPTAN HYDROBROMIDE
  24. BUTORPHANOL [Concomitant]
     Active Substance: BUTORPHANOL
  25. CITALOPRAM [Concomitant]
     Active Substance: CITALOPRAM HYDROBROMIDE
  26. NEXIUM [Concomitant]
     Active Substance: ESOMEPRAZOLE MAGNESIUM
  27. SONATA [Concomitant]
     Active Substance: ZALEPLON
  28. TEGRETOL [Concomitant]
     Active Substance: CARBAMAZEPINE
  29. AMITRIPTYLINE [Concomitant]
     Active Substance: AMITRIPTYLINE
  30. FROVA [Concomitant]
     Active Substance: FROVATRIPTAN SUCCINATE
  31. MARINOL [Concomitant]
     Active Substance: DRONABINOL
  32. CHLORPROMAZINE [Concomitant]
     Active Substance: CHLORPROMAZINE
  33. PROMETHAZINE [Concomitant]
     Active Substance: PROMETHAZINE\PROMETHAZINE HYDROCHLORIDE
  34. MECLIZINE [Concomitant]
     Active Substance: MECLIZINE\MECLIZINE HYDROCHLORIDE
  35. LYRICA [Concomitant]
     Active Substance: PREGABALIN
  36. NEURONTIN [Concomitant]
     Active Substance: GABAPENTIN
  37. ONDANSETRON [Concomitant]
     Active Substance: ONDANSETRON
  38. EFFEXOR [Concomitant]
     Active Substance: VENLAFAXINE HYDROCHLORIDE
  39. MAALOX ANTACID [Concomitant]
     Active Substance: ALUMINUM HYDROXIDE\DIMETHICONE\MAGNESIUM HYDROXIDE
  40. RANITIDINE [Concomitant]
     Active Substance: RANITIDINE\RANITIDINE HYDROCHLORIDE
  41. MELATONIN [Concomitant]
     Active Substance: MELATONIN
  42. ACETAMINOPHEN. [Concomitant]
     Active Substance: ACETAMINOPHEN
  43. HEPARIN [Concomitant]
     Active Substance: HEPARIN SODIUM
  44. EPIPEN [Concomitant]
     Active Substance: EPINEPHRINE
  45. TOPIRAMATE. [Concomitant]
     Active Substance: TOPIRAMATE
  46. SINGULAIR [Concomitant]
     Active Substance: MONTELUKAST SODIUM
  47. IBUPROFEN. [Concomitant]
     Active Substance: IBUPROFEN

REACTIONS (1)
  - Nasopharyngitis [Not Recovered/Not Resolved]
